FAERS Safety Report 16309088 (Version 16)
Quarter: 2020Q4

REPORT INFORMATION
  Report Type: Spontaneous
  Country: US (occurrence: US)
  Receive Date: 20190514
  Receipt Date: 20201218
  Transmission Date: 20210113
  Serious: Yes (Other)
  Sender: FDA-Public Use
  Company Number: US-PFIZER INC-2019198952

PATIENT
  Age: 32 Year
  Sex: Female
  Weight: 86.18 kg

DRUGS (5)
  1. PREMARIN [Suspect]
     Active Substance: ESTROGENS, CONJUGATED
     Dosage: 0.9 MG, 1X/DAY
     Route: 048
     Dates: start: 197210
  2. PREMARIN [Suspect]
     Active Substance: ESTROGENS, CONJUGATED
     Indication: HORMONE REPLACEMENT THERAPY
     Dosage: 1.25 MG, CYCLIC [TO BE TAKEN 3 WEEKS AND THEN A REST PERIOD FOR ONE WEEK/1.25 MG, TO BE TAKEN 3 WEEK
  3. PREMARIN [Suspect]
     Active Substance: ESTROGENS, CONJUGATED
     Dosage: 0.9 MG, 1X/DAY
     Dates: start: 197210
  4. PREMARIN [Suspect]
     Active Substance: ESTROGENS, CONJUGATED
     Dosage: 0.6 MG, DAILY
  5. PREMARIN [Suspect]
     Active Substance: ESTROGENS, CONJUGATED
     Dosage: 0.9 MG

REACTIONS (17)
  - Seizure [Unknown]
  - Asthma [Unknown]
  - Neuropathy peripheral [Unknown]
  - Sluggishness [Unknown]
  - Cerebral disorder [Unknown]
  - Lethargy [Unknown]
  - Feeling abnormal [Unknown]
  - Renal disorder [Unknown]
  - Product dispensing error [Unknown]
  - Hot flush [Unknown]
  - Pain in extremity [Unknown]
  - Cognitive disorder [Unknown]
  - Illness [Unknown]
  - Gait disturbance [Unknown]
  - Road traffic accident [Unknown]
  - Drug dependence [Unknown]
  - Asthenia [Unknown]

NARRATIVE: CASE EVENT DATE: 197210
